FAERS Safety Report 14357738 (Version 2)
Quarter: 2018Q1

REPORT INFORMATION
  Report Type: Spontaneous
  Country: GB (occurrence: GB)
  Receive Date: 20180105
  Receipt Date: 20180206
  Transmission Date: 20180509
  Serious: Yes (Other)
  Sender: FDA-Public Use
  Company Number: GB-MYLANLABS-2018M1000200

PATIENT
  Age: 51 Year
  Sex: Male
  Weight: 103 kg

DRUGS (2)
  1. CLOZAPINE. [Suspect]
     Active Substance: CLOZAPINE
     Indication: AFFECT LABILITY
     Dosage: 50 MG, UNK
     Route: 048
     Dates: start: 20111026, end: 20111117
  2. CLOZAPINE. [Suspect]
     Active Substance: CLOZAPINE
     Indication: PSYCHOTIC DISORDER

REACTIONS (5)
  - Monocytosis [Recovering/Resolving]
  - Eosinophilia [Recovering/Resolving]
  - Dyspnoea [Recovering/Resolving]
  - Cough [Recovering/Resolving]
  - Lymphocytosis [Recovering/Resolving]

NARRATIVE: CASE EVENT DATE: 20111103
